FAERS Safety Report 5320669-7 (Version None)
Quarter: 2007Q2

REPORT INFORMATION
  Report Type: 
  Country: None (occurrence: None)
  Receive Date: 20070502
  Receipt Date: 20070426
  Transmission Date: 20071010
  Serious: Yes (Hospitalization)
  Sender: FDA-Public Use
  Company Number: 20073663

PATIENT
  Age: 9 Year
  Sex: Female

DRUGS (1)
  1. LIORESAL [Suspect]
     Indication: MUSCLE SPASTICITY
     Dosage: 85.56 MCG, DAILY, INTRATHECAL
     Route: 037

REACTIONS (8)
  - CRYING [None]
  - DEHYDRATION [None]
  - HYPOTONIA [None]
  - INFLUENZA [None]
  - INSOMNIA [None]
  - LETHARGY [None]
  - ORAL INTAKE REDUCED [None]
  - RESPIRATORY RATE DECREASED [None]
